FAERS Safety Report 7324049-4 (Version None)
Quarter: 2011Q1

REPORT INFORMATION
  Report Type: 
  Country: None (occurrence: None)
  Receive Date: 20110301
  Receipt Date: 20110222
  Transmission Date: 20110831
  Serious: Yes (Other)
  Sender: FDA-Public Use
  Company Number: BR-ABBOTT-11P-020-0707641-00

PATIENT
  Sex: Female
  Weight: 85 kg

DRUGS (4)
  1. CLORATINA (?) [Concomitant]
     Indication: RHEUMATOID ARTHRITIS
     Route: 048
  2. HUMIRA [Suspect]
     Indication: RHEUMATOID ARTHRITIS
     Route: 058
     Dates: start: 20101028, end: 20101113
  3. LEFLUNOMIDE [Concomitant]
     Indication: RHEUMATOID ARTHRITIS
     Route: 048
  4. METHOTREXATE [Concomitant]
     Indication: RHEUMATOID ARTHRITIS
     Route: 048

REACTIONS (8)
  - DYSPNOEA [None]
  - HYPERSENSITIVITY [None]
  - INJECTION SITE PAIN [None]
  - WHEEZING [None]
  - ACUTE PULMONARY OEDEMA [None]
  - COUGH [None]
  - GENERALISED OEDEMA [None]
  - HYPERTENSION [None]
